FAERS Safety Report 9099236 (Version 2)
Quarter: 2013Q1

REPORT INFORMATION
  Report Type: Report from Study
  Country: BE (occurrence: BE)
  Receive Date: 20130213
  Receipt Date: 20130320
  Transmission Date: 20140127
  Serious: Yes (Hospitalization)
  Sender: FDA-Public Use
  Company Number: BE-CELGENEUS-013-21880-13020292

PATIENT
  Age: 40 Year
  Sex: Female

DRUGS (8)
  1. REVLIMID [Suspect]
     Indication: PLASMA CELL MYELOMA
     Route: 048
  2. DIFLUCAN [Concomitant]
     Indication: ANTIFUNGAL PROPHYLAXIS
     Route: 065
  3. ZOVIRAX [Concomitant]
     Indication: ANTIVIRAL PROPHYLAXIS
     Route: 065
  4. BACTRIM [Concomitant]
     Indication: INFECTION PROPHYLAXIS
     Route: 065
  5. CIPROXINE [Concomitant]
     Indication: ANTIBIOTIC PROPHYLAXIS
     Route: 065
  6. ANTIEMETIC [Concomitant]
     Indication: NAUSEA
     Route: 065
  7. G-CSF [Concomitant]
     Indication: NEUTROPENIA
     Route: 065
  8. RED BLOOD CELLS [Concomitant]
     Indication: ANAEMIA
     Route: 065

REACTIONS (1)
  - Acute lymphocytic leukaemia [Not Recovered/Not Resolved]
